FAERS Safety Report 7020455-6 (Version None)
Quarter: 2010Q3

REPORT INFORMATION
  Report Type: 
  Country: None (occurrence: None)
  Receive Date: 20100927
  Receipt Date: 20100917
  Transmission Date: 20110219
  Serious: Yes (Hospitalization, Other)
  Sender: FDA-Public Use
  Company Number: 2010P1001244

PATIENT
  Age: 78 Year
  Sex: Male

DRUGS (4)
  1. TRAMADOL (NO PREF. NAME) [Suspect]
     Indication: BONE PAIN
     Dosage: PO, 25 MG;QD;PO
     Route: 048
  2. CLARITHROMYCIN [Suspect]
     Indication: LARYNGITIS
     Dosage: 1000 MG;QD;PO
     Route: 048
  3. RABEPRAZOLE (NO PREF. NAME) [Suspect]
  4. ATORVASTATIN (NO PREF. NAME) [Suspect]

REACTIONS (16)
  - ANXIETY [None]
  - AORTIC CALCIFICATION [None]
  - BLOOD POTASSIUM DECREASED [None]
  - CEREBRAL ATROPHY [None]
  - COGNITIVE DISORDER [None]
  - DELUSION [None]
  - DRUG INTERACTION [None]
  - EMPHYSEMA [None]
  - GAIT DISTURBANCE [None]
  - HALLUCINATIONS, MIXED [None]
  - HEPATOMEGALY [None]
  - HYPERAEMIA [None]
  - LACUNAR INFARCTION [None]
  - PHARYNGEAL DISORDER [None]
  - RESPIRATION ABNORMAL [None]
  - TENSION [None]
